FAERS Safety Report 8304467-8 (Version None)
Quarter: 2012Q2

REPORT INFORMATION
  Report Type: 
  Country: None (occurrence: None)
  Receive Date: 20120423
  Receipt Date: 20120416
  Transmission Date: 20120825
  Serious: Yes (Hospitalization, Other)
  Sender: FDA-Public Use
  Company Number: US-BAYER-2011-122193

PATIENT
  Age: 16 Year
  Sex: Female
  Weight: 84.354 kg

DRUGS (7)
  1. ANTIBIOTICS [Concomitant]
     Route: 042
  2. NUVARING [Concomitant]
     Indication: DYSMENORRHOEA
  3. YAZ [Suspect]
     Dosage: UNK
     Dates: start: 20090101
  4. METRONIDAZOLE [Concomitant]
     Route: 042
  5. ANCEF [Concomitant]
  6. STEROIDS [Concomitant]
     Indication: CROHN'S DISEASE
  7. OMEPRAZOLE [Concomitant]
     Dosage: 20 MG, UNK
     Route: 048
     Dates: start: 20110219

REACTIONS (12)
  - ANXIETY [None]
  - CHOLECYSTITIS INFECTIVE [None]
  - ANHEDONIA [None]
  - CHOLANGITIS [None]
  - CHOLECYSTITIS [None]
  - PAIN [None]
  - WEIGHT DECREASED [None]
  - EMOTIONAL DISTRESS [None]
  - GALLBLADDER DISORDER [None]
  - GENERAL PHYSICAL HEALTH DETERIORATION [None]
  - MENTAL DISORDER [None]
  - INJURY [None]
